FAERS Safety Report 4181644 (Version 2)
Quarter: 2012Q4

REPORT INFORMATION
  Report Type: 
  Country: PH (occurrence: PH)
  Receive Date: 20040804
  Receipt Date: 20120925
  Transmission Date: 20130627
  Serious: Yes (Death, Hospitalization)
  Sender: FDA-Public Use
  Company Number: PHHO2004PH10579

PATIENT
  Age: 53 None
  Sex: Male
  Weight: 52.15 kg

DRUGS (1)
  1. GLIVEC [Suspect]
     Indication: CHRONIC MYELOID LEUKAEMIA
     Dosage: 600 mg, QD
     Route: 048
     Dates: start: 20040501

REACTIONS (3)
  - Death [Fatal]
  - Intracranial haematoma [Unknown]
  - Headache [Unknown]
